FAERS Safety Report 9122414 (Version 1)
Quarter: 2013Q1

REPORT INFORMATION
  Report Type: Spontaneous
  Country: AU (occurrence: AU)
  Receive Date: 20130227
  Receipt Date: 20130227
  Transmission Date: 20140127
  Serious: Yes (Other)
  Sender: FDA-Public Use
  Company Number: PHHY2013AU018069

PATIENT
  Sex: 0

DRUGS (2)
  1. CLOZAPINE [Suspect]
     Dosage: 100 MG, QD
  2. CLOZAPINE [Suspect]
     Dosage: 75 MG, QD

REACTIONS (8)
  - Myocarditis [Unknown]
  - C-reactive protein increased [Unknown]
  - Tachycardia [Unknown]
  - Troponin increased [Unknown]
  - Eosinophil count increased [Unknown]
  - Crepitations [Unknown]
  - Dysuria [Unknown]
  - Productive cough [Unknown]
